FAERS Safety Report 17257577 (Version 1)
Quarter: 2020Q1

REPORT INFORMATION
  Report Type: Spontaneous
  Country: US (occurrence: US)
  Receive Date: 20200109
  Receipt Date: 20200109
  Transmission Date: 20200409
  Serious: Yes (Hospitalization)
  Sender: FDA-Public Use
  Company Number: None

PATIENT
  Age: 74 Year
  Sex: Male

DRUGS (7)
  1. HYDRALAZINE HCL [Concomitant]
     Active Substance: HYDRALAZINE HYDROCHLORIDE
  2. LIBTAYO [Suspect]
     Active Substance: CEMIPLIMAB-RWLC
     Dosage: ?          OTHER FREQUENCY:IV EVERY 3 WEEKS;?
     Route: 042
  3. LATANOPROST. [Concomitant]
     Active Substance: LATANOPROST
  4. ELIQUIS [Concomitant]
     Active Substance: APIXABAN
  5. FINASTERIDE. [Concomitant]
     Active Substance: FINASTERIDE
  6. GABAPENTIN. [Concomitant]
     Active Substance: GABAPENTIN
  7. LUPRON DEPOT (3-MONTH) [Concomitant]

REACTIONS (1)
  - Hospitalisation [None]

NARRATIVE: CASE EVENT DATE: 20200109
